FAERS Safety Report 15027872 (Version 1)
Quarter: 2018Q2

REPORT INFORMATION
  Report Type: Spontaneous
  Country: US (occurrence: US)
  Receive Date: 20180619
  Receipt Date: 20180619
  Transmission Date: 20180711
  Serious: No
  Sender: FDA-Public Use
  Company Number: US-PFIZER INC-2018247444

PATIENT
  Sex: Female

DRUGS (1)
  1. IBRANCE [Suspect]
     Active Substance: PALBOCICLIB
     Indication: BREAST CANCER
     Dosage: 125 MG, CYCLIC, (ONCE DAILY FOR DAYS 1-21, THEN 7 DAYS OFF)
     Route: 048
     Dates: start: 20180531

REACTIONS (1)
  - Gingival pain [Recovered/Resolved]

NARRATIVE: CASE EVENT DATE: 201806
